FAERS Safety Report 25548939 (Version 1)
Quarter: 2025Q3

REPORT INFORMATION
  Report Type: Report from Study
  Country: US (occurrence: US)
  Receive Date: 20250714
  Receipt Date: 20250714
  Transmission Date: 20251020
  Serious: Yes (Hospitalization)
  Sender: GILEAD
  Company Number: US-GILEAD-2025-0720208

PATIENT
  Age: 31 Year
  Sex: Male

DRUGS (15)
  1. AZTREONAM LYSINE [Suspect]
     Active Substance: AZTREONAM LYSINE
     Indication: Cystic fibrosis lung
     Dosage: 75 MG: INHALE 1 VIAL VIA NEBULIZER THREE TIMES DAILY FOR 28 DAYS ON, THEN 28 DAYS OFF
     Route: 055
     Dates: start: 20240813
  2. ALBUTEROL [Concomitant]
     Active Substance: ALBUTEROL
  3. DOCUSATE SODIUM [Concomitant]
     Active Substance: DOCUSATE SODIUM
  4. DOVATO [Concomitant]
     Active Substance: DOLUTEGRAVIR SODIUM\LAMIVUDINE
  5. SODIUM CHLORIDE [Concomitant]
     Active Substance: SODIUM CHLORIDE
  6. LACTULOSE [Concomitant]
     Active Substance: LACTULOSE
  7. LANSOPRAZOLE [Concomitant]
     Active Substance: LANSOPRAZOLE
  8. LEVOFLOXACIN [Concomitant]
     Active Substance: LEVOFLOXACIN
  9. MESALAMINE [Concomitant]
     Active Substance: MESALAMINE
  10. ONDANSETRON [Concomitant]
     Active Substance: ONDANSETRON
  11. OXYCODONE [Concomitant]
     Active Substance: OXYCODONE
  12. PULMOZYME [Concomitant]
     Active Substance: DORNASE ALFA
  13. SODIUM CHLORIDE [Concomitant]
     Active Substance: SODIUM CHLORIDE
  14. TOBRAMYCIN [Concomitant]
     Active Substance: TOBRAMYCIN
  15. VITAMIN D3 [Concomitant]
     Active Substance: CHOLECALCIFEROL

REACTIONS (1)
  - Haemoptysis [Unknown]
